FAERS Safety Report 8859164 (Version 1)
Quarter: 2012Q4

REPORT INFORMATION
  Report Type: Spontaneous
  Country: US (occurrence: None)
  Receive Date: 20121023
  Receipt Date: 20121023
  Transmission Date: 20130627
  Serious: Yes (Death)
  Sender: FDA-Public Use
  Company Number: 15965288

PATIENT
  Age: 44 Year
  Sex: Male

DRUGS (15)
  1. DASATINIB [Suspect]
     Indication: ACUTE MYELOID LEUKAEMIA
     Dates: start: 20110801, end: 20110902
  2. DAUNORUBICIN [Suspect]
     Indication: ACUTE MYELOID LEUKAEMIA
     Dates: start: 20110725, end: 20110824
  3. CYTARABINE ARABINOSIDE [Suspect]
     Indication: ACUTE MYELOID LEUKAEMIA
     Dates: start: 20110725, end: 20110828
  4. VFEND (VORICONAZOLE) INFUSION [Suspect]
     Route: 048
     Dates: start: 20110814, end: 20110818
  5. METHOTREXATE [Concomitant]
  6. DEXAMETHASONE [Concomitant]
  7. CYTARABINE [Concomitant]
  8. HALDOL [Concomitant]
  9. TAVOR (LORAZEPAM) [Concomitant]
  10. ATOSIL (PROMETHAZINE HCL) [Concomitant]
  11. PROPOFOL (PROPOFOL) [Concomitant]
  12. MERONEM (MEROPENEM) [Concomitant]
  13. VANCOMYCIN [Concomitant]
  14. LAXOBERAL [Concomitant]
  15. ADVANTAN (METHYLPREDNISOLONE ACEPONATE) [Concomitant]

REACTIONS (28)
  - Neutropenic sepsis [None]
  - Clostridial infection [None]
  - Hypoaesthesia [None]
  - Febrile neutropenia [None]
  - Mental disorder due to a general medical condition [None]
  - Delirium [None]
  - Infarction [None]
  - Encephalopathy [None]
  - Myelopathy [None]
  - Hallucination [None]
  - Anaesthesia [None]
  - Faecal incontinence [None]
  - Cardiovascular disorder [None]
  - Rash [None]
  - Mental disorder due to a general medical condition [None]
  - Facial paresis [None]
  - Coagulopathy [None]
  - Pruritus [None]
  - Blood count abnormal [None]
  - Haemangioma of liver [None]
  - Infection [None]
  - Sinus tachycardia [None]
  - Hypotension [None]
  - Disturbance in attention [None]
  - Stomatitis [None]
  - Mucosal inflammation [None]
  - Mouth haemorrhage [None]
  - Leukaemic infiltration brain [None]
